FAERS Safety Report 4487684-7 (Version None)
Quarter: 2004Q4

REPORT INFORMATION
  Report Type: 
  Country: None (occurrence: None)
  Receive Date: 20041028
  Receipt Date: 20041020
  Transmission Date: 20050328
  Serious: Yes (Hospitalization)
  Sender: FDA-Public Use
  Company Number: GB-ABBOTT-04P-167-0278287-00

PATIENT
  Sex: Female

DRUGS (1)
  1. MERIDIA [Suspect]
     Indication: OBESITY
     Route: 048
     Dates: start: 20040601, end: 20040901

REACTIONS (3)
  - ARRHYTHMIA [None]
  - ELECTROCARDIOGRAM ST SEGMENT DEPRESSION [None]
  - SINUS TACHYCARDIA [None]
